FAERS Safety Report 6441953-X (Version None)
Quarter: 2009Q4

REPORT INFORMATION
  Report Type: 
  Country: None (occurrence: None)
  Receive Date: 20091112
  Receipt Date: 20091028
  Transmission Date: 20100525
  Serious: Yes (Hospitalization, Other)
  Sender: FDA-Public Use
  Company Number: AUR-APL-2009-01101

PATIENT
  Age: 30 Year
  Sex: Female

DRUGS (7)
  1. SIMVASTATIN [Suspect]
     Dosage: 1 TAB, BID
  2. AMOXICILLIN [Suspect]
     Indication: TOOTHACHE
     Dosage: 20MG, DAILY
  3. PREDNISONE [Concomitant]
  4. AZATHIOPRINE [Concomitant]
  5. CAPTOPRIL [Concomitant]
  6. FUROSEMIDE [Concomitant]
  7. FOLIC ACID [Concomitant]

REACTIONS (16)
  - CHILLS [None]
  - CONDITION AGGRAVATED [None]
  - CONJUNCTIVAL HAEMORRHAGE [None]
  - DIARRHOEA [None]
  - LEUKOCYTOSIS [None]
  - MYALGIA [None]
  - NEUTROPHILIA [None]
  - PRODUCTIVE COUGH [None]
  - RENAL FAILURE ACUTE [None]
  - RENAL FAILURE CHRONIC [None]
  - RHABDOMYOLYSIS [None]
  - SEPSIS [None]
  - SYSTEMIC LUPUS ERYTHEMATOSUS [None]
  - TOOTH INFECTION [None]
  - TOOTHACHE [None]
  - TYPE IV HYPERSENSITIVITY REACTION [None]
